FAERS Safety Report 7476882-6 (Version None)
Quarter: 2011Q2

REPORT INFORMATION
  Report Type: 
  Country: None (occurrence: None)
  Receive Date: 20110512
  Receipt Date: 20090323
  Transmission Date: 20111010
  Serious: Yes (Hospitalization, Other)
  Sender: FDA-Public Use
  Company Number: US-BAYER-200923870NA

PATIENT
  Age: 61 Year
  Sex: Male
  Weight: 96.145 kg

DRUGS (43)
  1. LOVENOX [Concomitant]
     Dosage: UNK
     Dates: start: 19991203, end: 19991205
  2. ACETYLSALICYLIC ACID SRT [Concomitant]
     Dosage: UNK
     Dates: start: 19991203
  3. REOPRO [Concomitant]
     Dosage: 23.8 MG BOLUS
     Route: 042
     Dates: start: 19991206, end: 19991206
  4. CALCIUM CHLORIDE [Concomitant]
     Dosage: 500 MG, UNK
     Route: 042
     Dates: start: 19991207, end: 19991207
  5. CARDIZEM [Concomitant]
     Dosage: UNK
     Dates: end: 19991219
  6. DECADRON [Concomitant]
  7. PLAVIX [Concomitant]
     Dosage: 300 MG, UNK
     Route: 048
     Dates: start: 19991203
  8. SUFENTANIL [Concomitant]
     Dosage: UNK
     Route: 042
     Dates: start: 19991207, end: 19991207
  9. PLATELETS [Concomitant]
     Dosage: 10 PACKS X4
     Dates: start: 19991207
  10. FRESH FROZEN PLASMA [Concomitant]
     Dosage: 6 UNITS
     Dates: start: 19991207
  11. RED BLOOD CELLS [Concomitant]
     Dosage: UNK
     Dates: start: 19991207
  12. PLAVIX [Concomitant]
     Dosage: 75 MG DAILY
     Route: 048
  13. AMICAR [Concomitant]
     Dosage: 2.5 G, UNK
     Route: 042
     Dates: start: 19991207, end: 19991207
  14. AMIODARONE HCL [Concomitant]
     Dosage: UNK
     Dates: start: 19991219
  15. ATACAND [Concomitant]
     Indication: PRODUCT USED FOR UNKNOWN INDICATION
     Dosage: LONG TERM USE
  16. BUMEX [Concomitant]
     Indication: PRODUCT USED FOR UNKNOWN INDICATION
     Dosage: LONG TERM USE
  17. FLONASE [Concomitant]
  18. NEO-SYNEPHRINOL [Concomitant]
     Dosage: UNK
     Route: 042
     Dates: start: 19991207, end: 19991207
  19. CELESTONE [Concomitant]
  20. ERYTHROMYCIN [Concomitant]
  21. TRASYLOL [Suspect]
     Indication: CORONARY ARTERY BYPASS
     Dosage: 1 ML, TEST DOSE
     Route: 042
     Dates: start: 19991207, end: 19991207
  22. PANCURONIUM BROMIDE [Concomitant]
     Dosage: UNK
     Route: 042
     Dates: start: 19991207, end: 19991207
  23. SODIUM BICARBONATE [Concomitant]
     Dosage: UNK
     Route: 042
     Dates: start: 19991207, end: 19991207
  24. HEPARIN [Concomitant]
     Dosage: UNK
     Route: 042
     Dates: start: 19991207, end: 19991207
  25. DOPAMINE HCL [Concomitant]
     Dosage: 7.5 MCG/KG
     Dates: start: 19991207, end: 19991213
  26. MANNITOL [Concomitant]
     Dosage: UNK
     Route: 042
     Dates: start: 19991207, end: 19991207
  27. ISOVUE-370 [Concomitant]
     Dosage: 404 ML
     Dates: start: 19991207
  28. ZOCOR [Concomitant]
  29. TRASYLOL [Suspect]
     Dosage: 25 CC/HR
     Route: 042
     Dates: start: 19991207, end: 19991207
  30. NITROGLYCERIN [Concomitant]
     Dosage: UNK
     Route: 042
     Dates: start: 19991203
  31. REOPRO [Concomitant]
     Dosage: 21 CC/HR
     Dates: start: 19991206, end: 19991206
  32. VANCOMYCIN [Concomitant]
     Indication: POSTOPERATIVE WOUND INFECTION
     Dosage: UNK
     Dates: start: 19991201
  33. GENTAMICIN [Concomitant]
     Indication: PRODUCT USED FOR UNKNOWN INDICATION
     Dosage: UNK
     Dates: start: 20080201, end: 20081001
  34. TRASYLOL [Suspect]
     Dosage: 100 CC OVER 30 MINUTES
     Route: 042
     Dates: start: 19991207, end: 19991207
  35. METOPROLOL TARTRATE [Concomitant]
     Dosage: UNK
     Route: 042
     Dates: start: 19991203
  36. LASIX [Concomitant]
     Dosage: 40 MG, UNK
     Route: 042
     Dates: start: 19991203
  37. VASOTEC [Concomitant]
     Dosage: 2.5 MG, UNK
     Route: 048
     Dates: start: 19991203
  38. PROTAMINE SULFATE [Concomitant]
     Dosage: 50 MG, UNK
     Dates: start: 19991207, end: 19991207
  39. DESMOPRESSIN ACETATE [Concomitant]
     Dosage: UNK
     Route: 042
     Dates: start: 19991207, end: 19991207
  40. MIDAZOLAM HCL [Concomitant]
     Dosage: 10 ML, UNK
     Route: 042
     Dates: start: 19991207, end: 19991207
  41. SOLU-MEDROL [Concomitant]
     Dosage: 60 MG, UNK
     Route: 042
     Dates: start: 19991207, end: 19991207
  42. ISOVUE-370 [Concomitant]
     Indication: CATHETERISATION CARDIAC
     Dosage: 404 ML, UNK
     Dates: start: 19991206
  43. ARISTOCORT [Concomitant]

REACTIONS (10)
  - EMOTIONAL DISTRESS [None]
  - MULTI-ORGAN FAILURE [None]
  - MYOCARDIAL INFARCTION [None]
  - RENAL INJURY [None]
  - STRESS [None]
  - ANXIETY [None]
  - UNEVALUABLE EVENT [None]
  - FEAR [None]
  - PAIN [None]
  - RENAL IMPAIRMENT [None]
